FAERS Safety Report 8609297 (Version 3)
Quarter: 2015Q1

REPORT INFORMATION
  Report Type: Spontaneous
  Country: US (occurrence: US)
  Receive Date: 20120611
  Receipt Date: 20150331
  Transmission Date: 20150721
  Serious: Yes (Hospitalization, Other)
  Sender: FDA-Public Use
  Company Number: US-ASTRAZENECA-2012SE02987

PATIENT
  Age: 59 Year
  Sex: Female
  Weight: 151.5 kg

DRUGS (2)
  1. PULMICORT FLEXHALER [Suspect]
     Active Substance: BUDESONIDE
     Indication: ASTHMA
     Route: 055
     Dates: start: 2006
  2. VENTOLIN HCA [Concomitant]
     Dosage: 2 PUFFS DAILY RIGHT BEFORE USING PULMICORT
     Route: 055
     Dates: start: 2006

REACTIONS (13)
  - Staphylococcal infection [Unknown]
  - Infection susceptibility increased [Unknown]
  - Malaise [Unknown]
  - Limb injury [Unknown]
  - Dysphonia [Unknown]
  - Rash [Unknown]
  - Foot fracture [Unknown]
  - Weight decreased [Unknown]
  - Impaired healing [Unknown]
  - Rash papular [Unknown]
  - Cellulitis [Unknown]
  - Body height decreased [Unknown]
  - Pyrexia [Unknown]

NARRATIVE: CASE EVENT DATE: 2014
